FAERS Safety Report 4299181-2 (Version None)
Quarter: 2004Q1

REPORT INFORMATION
  Report Type: 
  Country: None (occurrence: None)
  Receive Date: 20040217
  Receipt Date: 20040217
  Transmission Date: 20041129
  Serious: Yes (Other)
  Sender: FDA-Public Use
  Company Number: None

PATIENT
  Age: 37 Year
  Sex: Female
  Weight: 83.9154 kg

DRUGS (3)
  1. LEXAPRO [Suspect]
     Indication: ANXIETY
     Dosage: 10 MG QD ORAL
     Route: 048
     Dates: start: 20020102, end: 20040215
  2. LEXAPRO [Suspect]
     Indication: DEPRESSION
     Dosage: 10 MG QD ORAL
     Route: 048
     Dates: start: 20020102, end: 20040215
  3. LEXAPRO [Suspect]
     Indication: PANIC DISORDER
     Dosage: 10 MG QD ORAL
     Route: 048
     Dates: start: 20020102, end: 20040215

REACTIONS (2)
  - HYPOAESTHESIA [None]
  - SENSORY DISTURBANCE [None]
